FAERS Safety Report 4401133-6 (Version None)
Quarter: 2004Q3

REPORT INFORMATION
  Report Type: 
  Country: None (occurrence: None)
  Receive Date: 20040907
  Receipt Date: 20031112
  Transmission Date: 20050211
  Serious: Yes (Death, Other)
  Sender: FDA-Public Use
  Company Number: US-BRISTOL-MYERS SQUIBB COMPANY-12433355

PATIENT
  Age: 58 Year
  Sex: Female
  Weight: 72 kg

DRUGS (13)
  1. COUMADIN [Suspect]
     Indication: TRANSIENT ISCHAEMIC ATTACK
     Route: 048
     Dates: start: 20030216, end: 20030221
  2. LOVENOX [Suspect]
     Indication: TRANSIENT ISCHAEMIC ATTACK
     Dosage: INJECTION
     Dates: start: 20030213, end: 20030221
  3. ASPIRIN [Concomitant]
  4. TORADOL [Concomitant]
  5. SYNTHROID [Concomitant]
     Indication: HYPOTHYROIDISM
  6. EFFEXOR [Concomitant]
  7. AMBIEN [Concomitant]
  8. PHENERGAN [Concomitant]
  9. VITAMIN B COMPLEX CAP [Concomitant]
  10. VANCOMYCIN HCL [Concomitant]
  11. PREMARIN [Concomitant]
  12. MULTI-VITAMIN [Concomitant]
  13. CALCIUM [Concomitant]

REACTIONS (1)
  - CEREBRAL HAEMORRHAGE [None]
